FAERS Safety Report 6541652-X (Version None)
Quarter: 2010Q1

REPORT INFORMATION
  Report Type: 
  Country: None (occurrence: None)
  Receive Date: 20100119
  Receipt Date: 20100106
  Transmission Date: 20100710
  Serious: No
  Sender: FDA-Public Use
  Company Number: US-B.I. PHARMACEUTICALS,INC./RIDGEFIELD-2009-BP-14484BP

PATIENT
  Sex: Male

DRUGS (8)
  1. AGGRENOX [Suspect]
     Indication: CEREBROVASCULAR ACCIDENT PROPHYLAXIS
     Route: 048
     Dates: start: 20091215
  2. NORVASC [Concomitant]
     Indication: HYPERTENSION
  3. HYZAAR [Concomitant]
     Indication: HYPERTENSION
  4. POTASSIUM [Concomitant]
     Indication: HYPERTENSION
  5. AMLODIPINE [Concomitant]
  6. ASPIRIN [Concomitant]
  7. VITAMIN [Concomitant]
  8. OMEGA/FISH OIL [Concomitant]

REACTIONS (3)
  - HEADACHE [None]
  - PAIN IN EXTREMITY [None]
  - SENSATION OF BLOOD FLOW [None]
